FAERS Safety Report 5374324-8 (Version None)
Quarter: 2007Q2

REPORT INFORMATION
  Report Type: 
  Country: None (occurrence: None)
  Receive Date: 20070629
  Receipt Date: 20070620
  Transmission Date: 20071010
  Serious: Yes (Other)
  Sender: FDA-Public Use
  Company Number: PHBS2007IT10627

PATIENT
  Sex: Female

DRUGS (4)
  1. AREDIA [Suspect]
     Indication: OSTEOPOROSIS
     Dosage: 90 MG, UNK
     Route: 042
     Dates: start: 20050901, end: 20070619
  2. CLASTEON [Concomitant]
     Indication: OSTEOPOROSIS
     Dosage: 100 MG, UNK
     Route: 030
  3. ADRONAT [Concomitant]
     Dosage: 70 MG, UNK
     Route: 048
  4. DELTACORTENE [Concomitant]
     Dosage: 1.25 MG, UNK
     Route: 048

REACTIONS (7)
  - DENTAL TREATMENT [None]
  - ERYTHEMA [None]
  - FISTULA [None]
  - MASTICATION DISORDER [None]
  - OSTEONECROSIS [None]
  - PAIN [None]
  - PURULENT DISCHARGE [None]
